FAERS Safety Report 21083072 (Version 1)
Quarter: 2022Q3

REPORT INFORMATION
  Report Type: Spontaneous
  Country: US (occurrence: US)
  Receive Date: 20220714
  Receipt Date: 20220714
  Transmission Date: 20221027
  Serious: No
  Sender: FDA-Public Use
  Company Number: US-BRISTOL-MYERS SQUIBB COMPANY-2022-074119

PATIENT
  Age: 46 Year
  Sex: Male
  Weight: 134.72 kg

DRUGS (1)
  1. REVLIMID [Suspect]
     Active Substance: LENALIDOMIDE
     Indication: Plasma cell myeloma
     Dosage: DAILY 28DAYS
     Route: 048

REACTIONS (2)
  - Pyrexia [Unknown]
  - Joint swelling [Unknown]
